FAERS Safety Report 9339090 (Version 1)
Quarter: 2013Q2

REPORT INFORMATION
  Report Type: Spontaneous
  Country: US (occurrence: None)
  Receive Date: 20130606
  Receipt Date: 20130606
  Transmission Date: 20140414
  Serious: Yes (Other)
  Sender: FDA-Public Use
  Company Number: None

PATIENT
  Age: 59 Year
  Sex: Male
  Weight: 108.86 kg

DRUGS (1)
  1. PRILOSEC [Suspect]
     Indication: GASTROOESOPHAGEAL REFLUX DISEASE
     Route: 048
     Dates: start: 20130501, end: 20130515

REACTIONS (6)
  - Lip swelling [None]
  - Oral discomfort [None]
  - Paraesthesia oral [None]
  - Urticaria [None]
  - Pruritus [None]
  - Pain [None]
